FAERS Safety Report 6259807 (Version 7)
Quarter: 2016Q4

REPORT INFORMATION
  Report Type: Spontaneous
  Country: US (occurrence: US)
  Receive Date: 20070313
  Receipt Date: 20161212
  Transmission Date: 20170207
  Serious: Yes (Other)
  Sender: FDA-Public Use
  Company Number: US-BAYER-200710767BWH

PATIENT
  Age: 40 Year
  Sex: Female
  Weight: 68 kg

DRUGS (5)
  1. PREDNISONE. [Concomitant]
     Active Substance: PREDNISONE
     Dosage: UNK
     Dates: start: 200704
  2. AVELOX [Suspect]
     Active Substance: MOXIFLOXACIN HYDROCHLORIDE
     Indication: SINUSITIS
     Dosage: 400 MG, QD
     Route: 048
     Dates: start: 20070305
  3. AUGMENTIN [Suspect]
     Active Substance: AMOXICILLIN\CLAVULANATE POTASSIUM
     Dosage: UNK
     Route: 048
     Dates: start: 20070306
  4. FLONASE [Concomitant]
     Active Substance: FLUTICASONE PROPIONATE
     Dosage: UNK
     Dates: start: 200704
  5. NEURONTIN [Concomitant]
     Active Substance: GABAPENTIN
     Dosage: UNK

REACTIONS (58)
  - Sinusitis [None]
  - Arteritis [None]
  - Myositis [None]
  - Biliary colic [None]
  - Biliary dyskinesia [None]
  - Crying [Recovering/Resolving]
  - Injury [None]
  - Emotional disorder [None]
  - Fear [None]
  - Epigastric discomfort [None]
  - Guillain-Barre syndrome [None]
  - Pain in extremity [None]
  - Cholelithiasis [None]
  - Oesophagitis [None]
  - Retinopathy [Unknown]
  - Tremor [Recovering/Resolving]
  - Burning sensation [None]
  - Chronic gastritis [None]
  - Dizziness [Unknown]
  - Tendonitis [Recovering/Resolving]
  - Visual acuity reduced [Unknown]
  - Hypoaesthesia [None]
  - Paraesthesia [None]
  - Pain [None]
  - Emotional distress [None]
  - Depression [None]
  - Hypokalaemia [None]
  - Abdominal pain upper [None]
  - Migraine [None]
  - Oedema peripheral [None]
  - Syncope [Unknown]
  - Neuropathy peripheral [None]
  - Quality of life decreased [None]
  - Insomnia [None]
  - Abdominal discomfort [None]
  - Myopathy [None]
  - Colitis ulcerative [None]
  - Transaminases increased [None]
  - Gastric ulcer [None]
  - Dysphagia [None]
  - Anxiety [Recovering/Resolving]
  - Hypoaesthesia [None]
  - Dyspnoea [None]
  - Atypical pneumonia [None]
  - Chest pain [None]
  - Demyelination [None]
  - Liver function test increased [None]
  - Asthenia [None]
  - Chest discomfort [None]
  - Acute respiratory failure [Recovered/Resolved]
  - Toxic neuropathy [None]
  - Myalgia [None]
  - Tremor [Recovering/Resolving]
  - Burning sensation [None]
  - Anxiety [None]
  - Hypothyroidism [None]
  - Bronchitis chronic [None]
  - Gastroenteritis viral [None]

NARRATIVE: CASE EVENT DATE: 200703
